FAERS Safety Report 24343033 (Version 2)
Quarter: 2024Q3

REPORT INFORMATION
  Report Type: Spontaneous
  Country: GB (occurrence: GB)
  Receive Date: 20240920
  Receipt Date: 20240924
  Transmission Date: 20241017
  Serious: Yes (Death)
  Sender: NOVARTIS
  Company Number: GB-002147023-NVSC2024GB187437

PATIENT

DRUGS (3)
  1. PLUVICTO [Suspect]
     Active Substance: LUTETIUM LU-177 VIPIVOTIDE TETRAXETAN
     Indication: Prostate cancer metastatic
     Dosage: UNK, CYCLE 1
     Route: 065
     Dates: start: 20231120
  2. PLUVICTO [Suspect]
     Active Substance: LUTETIUM LU-177 VIPIVOTIDE TETRAXETAN
     Dosage: UNK, CYCLE 2
     Route: 065
     Dates: start: 20231229
  3. PLUVICTO [Suspect]
     Active Substance: LUTETIUM LU-177 VIPIVOTIDE TETRAXETAN
     Dosage: UNK, CYCLE 3
     Route: 065
     Dates: start: 20240223

REACTIONS (2)
  - Prostatic specific antigen abnormal [Fatal]
  - Disease progression [Fatal]

NARRATIVE: CASE EVENT DATE: 20240623
